FAERS Safety Report 5815155-1 (Version None)
Quarter: 2008Q3

REPORT INFORMATION
  Report Type: 
  Country: None (occurrence: None)
  Receive Date: 20080718
  Receipt Date: 20080714
  Transmission Date: 20090109
  Serious: Yes (Hospitalization, Other)
  Sender: FDA-Public Use
  Company Number: CA-SANOFI-SYNTHELABO-F01200700119

PATIENT
  Sex: Male

DRUGS (6)
  1. DEXAMETHASONE [Concomitant]
     Route: 065
     Dates: start: 20070111, end: 20070111
  2. ZOFRAN [Concomitant]
     Route: 065
     Dates: start: 20070111, end: 20070111
  3. LEUCOVORIN CALCIUM [Suspect]
     Route: 042
  4. BEVACIZUMAB [Suspect]
     Route: 042
     Dates: start: 20070111, end: 20070111
  5. CAPECITABINE [Suspect]
     Dosage: 4000 MG
     Route: 048
     Dates: start: 20070111, end: 20070113
  6. OXALIPLATIN [Suspect]
     Indication: COLON CANCER
     Route: 042
     Dates: start: 20070111, end: 20070111

REACTIONS (1)
  - CARDIAC DISORDER [None]
